FAERS Safety Report 8580038-3 (Version None)
Quarter: 2012Q3

REPORT INFORMATION
  Report Type: 
  Country: None (occurrence: None)
  Receive Date: 20120731
  Receipt Date: 20120731
  Transmission Date: 20120928
  Serious: Yes (Hospitalization)
  Sender: FDA-Public Use
  Company Number: None

PATIENT
  Age: 30 Year
  Sex: Female
  Weight: 62.5964 kg

DRUGS (2)
  1. LATUDA [Suspect]
     Indication: PSYCHOTIC DISORDER
     Dosage: 60 MG DAILY PO
     Route: 048
     Dates: start: 20120525, end: 20120606
  2. GEODON [Suspect]
     Indication: PSYCHOTIC DISORDER
     Dosage: 80 MG DAILY PO
     Route: 048
     Dates: start: 20120418, end: 20120606

REACTIONS (2)
  - UNEVALUABLE EVENT [None]
  - NEUROLEPTIC MALIGNANT SYNDROME [None]
